FAERS Safety Report 9562047 (Version 2)
Quarter: 2013Q4

REPORT INFORMATION
  Report Type: Spontaneous
  Country: FR (occurrence: FR)
  Receive Date: 20130927
  Receipt Date: 20131001
  Transmission Date: 20140711
  Serious: Yes (Hospitalization)
  Sender: FDA-Public Use
  Company Number: FR-PFIZER INC-2013274419

PATIENT
  Age: 73 Year
  Sex: Female

DRUGS (10)
  1. TAZOCILLINE [Suspect]
     Indication: ERYSIPELAS
     Dosage: UNK
     Route: 042
     Dates: start: 20130524
  2. VANCOMYCINE [Suspect]
     Indication: ERYSIPELAS
     Dosage: UNK
     Route: 042
     Dates: start: 20130524
  3. PRIMPERAN [Concomitant]
  4. TOPALGIC [Concomitant]
  5. IMODIUM [Concomitant]
  6. ACUPAN [Concomitant]
  7. LOVENOX [Concomitant]
  8. FORLAX [Concomitant]
  9. DAKTARIN [Concomitant]
  10. SMECTA [Concomitant]

REACTIONS (7)
  - Toxic skin eruption [Recovered/Resolved]
  - Rash maculo-papular [Recovered/Resolved]
  - Drug reaction with eosinophilia and systemic symptoms [Recovered/Resolved]
  - Eosinophilia [Recovered/Resolved]
  - Pruritus [Recovered/Resolved]
  - Leukocytosis [Recovered/Resolved]
  - Lymphadenopathy [Recovered/Resolved]
